FAERS Safety Report 9594005 (Version 2)
Quarter: 2013Q4

REPORT INFORMATION
  Report Type: Spontaneous
  Country: JP (occurrence: JP)
  Receive Date: 20131004
  Receipt Date: 20131008
  Transmission Date: 20140711
  Serious: Yes (Other)
  Sender: FDA-Public Use
  Company Number: JP-ASTRAZENECA-2013SE72137

PATIENT
  Age: 72 Year
  Sex: Male
  Weight: 61 kg

DRUGS (8)
  1. PROPOFOL (NON AZ PRODUCT) [Suspect]
     Indication: INDUCTION OF ANAESTHESIA
     Route: 042
  2. ATROPINE [Concomitant]
     Indication: INDUCTION OF ANAESTHESIA
     Route: 065
  3. ROCURONIUM BROMIDE [Concomitant]
     Indication: INDUCTION OF ANAESTHESIA
     Route: 042
  4. OXYGEN [Concomitant]
     Indication: INDUCTION AND MAINTENANCE OF ANAESTHESIA
     Dosage: AT THE INDUCTION: 5 L/MIN AT THE MAINTENANCE: 2 L/MIN
     Route: 055
  5. SEVOFLURANE [Concomitant]
     Indication: INDUCTION AND MAINTENANCE OF ANAESTHESIA
     Dosage: 3%, DOSE UNKNOWN
     Route: 065
  6. REMIFENTANIL HYDROCHLORIDE [Concomitant]
     Indication: INDUCTION AND MAINTENANCE OF ANAESTHESIA
     Dosage: AT THE INDUCTION: 0.2 MCG/KG/MIN AT THE MAINTENANCE: 0.1 - 0.3 MCG/KG/MIN
     Route: 042
  7. FENTANYL [Concomitant]
     Indication: ANALGESIC THERAPY
     Dosage: DOSE UNKNOWN
     Route: 065
  8. DILTIAZEM HYDROCHLORIDE [Concomitant]
     Dosage: 0.5 MCG/KG/MIN
     Route: 065

REACTIONS (5)
  - Ventricular tachycardia [Recovered/Resolved]
  - Prinzmetal angina [Recovered/Resolved]
  - Electrocardiogram ST segment elevation [Recovered/Resolved]
  - Ventricular extrasystoles [Recovered/Resolved]
  - Blood pressure decreased [Recovered/Resolved]
